FAERS Safety Report 5822289-4 (Version None)
Quarter: 2008Q3

REPORT INFORMATION
  Report Type: 
  Country: None (occurrence: None)
  Receive Date: 20080725
  Receipt Date: 20080417
  Transmission Date: 20090109
  Serious: No
  Sender: FDA-Public Use
  Company Number: US-AMGEN-KDL269282

PATIENT
  Sex: Female

DRUGS (16)
  1. PROCRIT [Suspect]
     Indication: RENAL FAILURE CHRONIC
     Dates: start: 20020725
  2. ALLOPURINOL [Concomitant]
  3. ATACAND [Concomitant]
  4. NEBIVOLOL HCL [Concomitant]
  5. DILTIAZEM HCL [Concomitant]
  6. LIPITOR [Concomitant]
  7. SILDENAFIL CITRATE [Concomitant]
  8. SYNTHROID [Concomitant]
  9. TORSEMIDE [Concomitant]
  10. FOLTX [Concomitant]
  11. ZEGERID [Concomitant]
  12. NIFEREX [Concomitant]
  13. ASCORBIC ACID [Concomitant]
  14. LANTUS [Concomitant]
  15. HUMALOG [Concomitant]
  16. BYETTA [Concomitant]

REACTIONS (1)
  - THERAPEUTIC RESPONSE DECREASED [None]
